FAERS Safety Report 4751779-0 (Version None)
Quarter: 2005Q3

REPORT INFORMATION
  Report Type: 
  Country: None (occurrence: None)
  Receive Date: 20050823
  Receipt Date: 20050823
  Transmission Date: 20060218
  Serious: Yes (Other)
  Sender: FDA-Public Use
  Company Number: None

PATIENT
  Age: 26 Year
  Sex: Female
  Weight: 70.3075 kg

DRUGS (1)
  1. CUPRIMINE [Suspect]
     Indication: HEPATO-LENTICULAR DEGENERATION
     Dosage: 2-250MG 2X DAY
     Dates: start: 19890901

REACTIONS (7)
  - ABDOMINAL PAIN UPPER [None]
  - CLUMSINESS [None]
  - DIZZINESS [None]
  - HEADACHE [None]
  - IRRITABILITY [None]
  - NAUSEA [None]
  - VISION BLURRED [None]
